FAERS Safety Report 24433020 (Version 2)
Quarter: 2025Q1

REPORT INFORMATION
  Report Type: Spontaneous
  Country: JP (occurrence: JP)
  Receive Date: 20241014
  Receipt Date: 20250225
  Transmission Date: 20250408
  Serious: Yes (Death, Other)
  Sender: GENMAB
  Company Number: JP-GENMAB-2024-03655

PATIENT
  Age: 75 Year
  Sex: Male
  Weight: 65 kg

DRUGS (7)
  1. EPKINLY [Suspect]
     Active Substance: EPCORITAMAB-BYSP
     Indication: Diffuse large B-cell lymphoma
     Route: 058
     Dates: start: 20240806, end: 20240806
  2. EPKINLY [Suspect]
     Active Substance: EPCORITAMAB-BYSP
     Route: 058
     Dates: start: 20240813, end: 20240813
  3. EPKINLY [Suspect]
     Active Substance: EPCORITAMAB-BYSP
     Route: 058
     Dates: start: 20240820, end: 20240910
  4. CORTICOTROPIN [Concomitant]
     Active Substance: CORTICOTROPIN
     Indication: Premedication
     Dates: start: 20240806, end: 20240907
  5. ANTIHISTAMINES NOS [Concomitant]
     Active Substance: ANTIHISTAMINES NOS
     Indication: Premedication
     Dates: start: 20240806, end: 20240904
  6. UNSPECIFIED INGREDIENT [Concomitant]
     Active Substance: UNSPECIFIED INGREDIENT
     Indication: Premedication
     Dates: start: 20240806, end: 20240904
  7. AMBROXOL HYDROCHLORIDE [Concomitant]
     Active Substance: AMBROXOL HYDROCHLORIDE
     Route: 048
     Dates: start: 20240829, end: 20240916

REACTIONS (8)
  - Septic shock [Fatal]
  - Herpes zoster disseminated [Unknown]
  - Septic cardiomyopathy [Unknown]
  - Pancytopenia [Unknown]
  - Acute kidney injury [Unknown]
  - Cytokine release syndrome [Recovering/Resolving]
  - Eye pain [Unknown]
  - Chest pain [Unknown]

NARRATIVE: CASE EVENT DATE: 20240816
